FAERS Safety Report 6646602-3 (Version None)
Quarter: 2010Q1

REPORT INFORMATION
  Report Type: 
  Country: None (occurrence: None)
  Receive Date: 20100322
  Receipt Date: 20100322
  Transmission Date: 20100710
  Serious: Yes (Hospitalization)
  Sender: FDA-Public Use
  Company Number: None

PATIENT
  Sex: Female
  Weight: 59 kg

DRUGS (4)
  1. VYTORIN [Suspect]
     Indication: CORONARY ARTERY DISEASE
     Dosage: 1 TABLET DAILY BY MOUTH RESTART 3/4/10
     Route: 048
     Dates: start: 20090301, end: 20100201
  2. VYTORIN [Suspect]
     Indication: HYPERLIPIDAEMIA
     Dosage: 1 TABLET DAILY BY MOUTH RESTART 3/4/10
     Route: 048
     Dates: start: 20090301, end: 20100201
  3. VYTORIN [Suspect]
     Indication: CORONARY ARTERY DISEASE
     Dosage: 1 TABLET DAILY BY MOUTH RESTART 3/4/10
     Route: 048
     Dates: start: 20100304
  4. VYTORIN [Suspect]
     Indication: HYPERLIPIDAEMIA
     Dosage: 1 TABLET DAILY BY MOUTH RESTART 3/4/10
     Route: 048
     Dates: start: 20100304

REACTIONS (5)
  - DIARRHOEA [None]
  - DIZZINESS [None]
  - LIVER FUNCTION TEST ABNORMAL [None]
  - NAUSEA [None]
  - RETCHING [None]
